FAERS Safety Report 8123945-8 (Version None)
Quarter: 2012Q1

REPORT INFORMATION
  Report Type: 
  Country: None (occurrence: None)
  Receive Date: 20120209
  Receipt Date: 20120131
  Transmission Date: 20120608
  Serious: Yes (Other)
  Sender: FDA-Public Use
  Company Number: CA-JNJFOC-20120112590

PATIENT
  Sex: Female
  Weight: 55 kg

DRUGS (4)
  1. REMICADE [Suspect]
     Route: 042
     Dates: start: 20101201
  2. REMICADE [Suspect]
     Indication: PSORIATIC ARTHROPATHY
     Route: 042
     Dates: start: 20101201
  3. REMICADE [Suspect]
     Indication: PSORIASIS
     Route: 042
     Dates: start: 20111213, end: 20111213
  4. REMICADE [Suspect]
     Route: 042
     Dates: start: 20111213, end: 20111213

REACTIONS (1)
  - SYSTEMIC LUPUS ERYTHEMATOSUS [None]
